FAERS Safety Report 8085029-7 (Version None)
Quarter: 2012Q1

REPORT INFORMATION
  Report Type: 
  Country: None (occurrence: None)
  Receive Date: 20120128
  Receipt Date: 20110331
  Transmission Date: 20120608
  Serious: No
  Sender: FDA-Public Use
  Company Number: US-ABBOTT-11P-163-0715947-00

PATIENT
  Sex: Male
  Weight: 131.66 kg

DRUGS (20)
  1. SIMPLEX M [Concomitant]
     Indication: VITAMIN SUPPLEMENTATION
     Dates: start: 20110301
  2. SP CLEANSE [Concomitant]
     Indication: MEDICAL DIET
     Dates: start: 20110301
  3. CARDIO PLUS [Concomitant]
     Indication: VITAMIN SUPPLEMENTATION
  4. ALLOPURINOL [Concomitant]
     Indication: RENAL DISORDER
  5. METFFORMIN HYDROCHLORIDE [Concomitant]
     Indication: DIABETES MELLITUS
  6. WARFARIN SODIUM [Concomitant]
     Indication: ATRIAL FIBRILLATION
  7. TACLONEX [Concomitant]
     Indication: PRODUCT USED FOR UNKNOWN INDICATION
     Dosage: SCALP TREATMENT
  8. NEUTROGENA T [Concomitant]
     Indication: PRODUCT USED FOR UNKNOWN INDICATION
     Dosage: GEL
  9. HUMIRA [Suspect]
     Indication: PSORIASIS
     Dates: start: 20110315
  10. CARVEDILOL [Concomitant]
     Indication: ATRIAL FIBRILLATION
  11. LASIX [Concomitant]
     Indication: PRODUCT USED FOR UNKNOWN INDICATION
  12. LANTUS [Concomitant]
     Indication: DIABETES MELLITUS
  13. AVAPRO [Concomitant]
     Indication: HYPERTENSION
  14. LOVAZA [Concomitant]
     Indication: VITAMIN SUPPLEMENTATION
     Dates: start: 20110301
  15. CALCIUM LACTATE [Concomitant]
     Indication: MINERAL SUPPLEMENTATION
     Dates: start: 20110301
  16. HERB-VITAL [Concomitant]
     Indication: VITAMIN SUPPLEMENTATION
  17. CLOBEX [Concomitant]
     Indication: PRODUCT USED FOR UNKNOWN INDICATION
  18. BOUND MINERALS [Concomitant]
     Indication: MINERAL SUPPLEMENTATION
     Dates: start: 20110301
  19. ASPIRIN [Concomitant]
     Indication: PRODUCT USED FOR UNKNOWN INDICATION
  20. SIMVASTATIN [Concomitant]
     Indication: PRODUCT USED FOR UNKNOWN INDICATION

REACTIONS (1)
  - BLOOD PRESSURE INCREASED [None]
